FAERS Safety Report 11883732 (Version 2)
Quarter: 2016Q1

REPORT INFORMATION
  Report Type: Report from Study
  Country: US (occurrence: US)
  Receive Date: 20160101
  Receipt Date: 20160127
  Transmission Date: 20160526
  Serious: Yes (Other)
  Sender: FDA-Public Use
  Company Number: US-AMGEN-USASL2015140097

PATIENT
  Age: 66 Year
  Sex: Male

DRUGS (1)
  1. ENBREL [Suspect]
     Active Substance: ETANERCEPT
     Indication: RHEUMATOID ARTHRITIS
     Dosage: 50 MG, QWK
     Route: 065
     Dates: start: 20090408

REACTIONS (11)
  - Pulmonary mass [Not Recovered/Not Resolved]
  - Blood creatinine abnormal [Unknown]
  - Nerve compression [Unknown]
  - Joint effusion [Unknown]
  - Joint swelling [Unknown]
  - Condition aggravated [Not Recovered/Not Resolved]
  - Dyspnoea [Unknown]
  - Arthritis [Unknown]
  - Bladder cancer [Unknown]
  - Nasal septum deviation [Unknown]
  - Thrombosis [Unknown]

NARRATIVE: CASE EVENT DATE: 2010
